FAERS Safety Report 12232576 (Version 1)
Quarter: 2016Q2

REPORT INFORMATION
  Report Type: Report from Study
  Country: CN (occurrence: CN)
  Receive Date: 20160401
  Receipt Date: 20160401
  Transmission Date: 20160815
  Serious: Yes (Hospitalization, Other)
  Sender: FDA-Public Use
  Company Number: CN-ASTRAZENECA-2016SE17932

PATIENT
  Age: 63 Year
  Sex: Male

DRUGS (5)
  1. BYETTA [Suspect]
     Active Substance: EXENATIDE
     Indication: TYPE 2 DIABETES MELLITUS
     Route: 058
     Dates: start: 20160115, end: 20160122
  2. CHARCOAL, ACTIVATED [Concomitant]
     Active Substance: ACTIVATED CHARCOAL
     Indication: BLOOD CREATININE INCREASED
     Dosage: 7 CAPSULES/TID
  3. BYETTA [Suspect]
     Active Substance: EXENATIDE
     Indication: OBESITY
     Route: 058
     Dates: start: 20160115, end: 20160122
  4. FUROSEMIDE. [Concomitant]
     Active Substance: FUROSEMIDE
     Indication: POLYURIA
     Dosage: 2 TABLETS/BID
  5. SPIRONOLACTONE. [Concomitant]
     Active Substance: SPIRONOLACTONE
     Indication: POLYURIA
     Dosage: 1 TABLET/BID

REACTIONS (11)
  - Peripheral swelling [Unknown]
  - Vomiting [Recovered/Resolved]
  - Blood creatinine increased [Unknown]
  - Suffocation feeling [Unknown]
  - Urine output decreased [Recovering/Resolving]
  - Swelling face [Unknown]
  - Nausea [Recovered/Resolved]
  - Weight decreased [Unknown]
  - Chest discomfort [Unknown]
  - Decreased appetite [Recovered/Resolved]
  - Acute kidney injury [Unknown]

NARRATIVE: CASE EVENT DATE: 20160115
